FAERS Safety Report 5456956-1 (Version None)
Quarter: 2007Q3

REPORT INFORMATION
  Report Type: 
  Country: None (occurrence: None)
  Receive Date: 20070918
  Receipt Date: 20070531
  Transmission Date: 20080115
  Serious: Yes (Other)
  Sender: FDA-Public Use
  Company Number: US-ASTRAZENECA-2006UW27466

PATIENT
  Age: 572 Month
  Sex: Male
  Weight: 91.8 kg

DRUGS (3)
  1. SEROQUEL [Suspect]
     Indication: SCHIZOPHRENIA
     Route: 048
     Dates: start: 20051201, end: 20060601
  2. HALDOL [Concomitant]
     Dates: start: 20010101
  3. RISPERDAL [Concomitant]
     Dates: start: 19990101

REACTIONS (4)
  - DIABETES MELLITUS [None]
  - KETOACIDOSIS [None]
  - PANCREATITIS [None]
  - WEIGHT INCREASED [None]
